FAERS Safety Report 14274442 (Version 2)
Quarter: 2018Q1

REPORT INFORMATION
  Report Type: Spontaneous
  Country: DE (occurrence: DE)
  Receive Date: 20171211
  Receipt Date: 20180111
  Transmission Date: 20180508
  Serious: Yes (Hospitalization)
  Sender: FDA-Public Use
  Company Number: DE-OTSUKA-2015_010688

PATIENT
  Age: 28 Year
  Sex: Female

DRUGS (16)
  1. SOLIAN [Suspect]
     Active Substance: AMISULPRIDE
     Indication: SCHIZOAFFECTIVE DISORDER
     Dosage: 200 G, QD; DAILY DOSE: 200 MG MILLIGRAM(S)
     Route: 048
     Dates: start: 20140626
  2. SERTRALIN STADA [Suspect]
     Active Substance: SERTRALINE HYDROCHLORIDE
     Dosage: 75 MG, UNK
     Route: 065
     Dates: start: 20140729
  3. ABILIFY [Suspect]
     Active Substance: ARIPIPRAZOLE
     Indication: SCHIZOAFFECTIVE DISORDER
     Dosage: 5 MG, QD; DAILY DOSE: 5 MG MILLIGRAM(S)
     Route: 065
     Dates: start: 20140611, end: 20140619
  4. ABILIFY [Suspect]
     Active Substance: ARIPIPRAZOLE
     Dosage: 20 MG, QD; DAILY DOSE: 20 MG MILLIGRAM(S)
     Route: 065
     Dates: start: 20140623, end: 20140624
  5. ABILIFY [Suspect]
     Active Substance: ARIPIPRAZOLE
     Dosage: 30 MG, QD; DAILY DOSE: 30 MG MILLIGRAM(S)
     Route: 065
     Dates: start: 20140625, end: 20140626
  6. SOLIAN [Suspect]
     Active Substance: AMISULPRIDE
     Dosage: UNK
     Route: 048
     Dates: start: 20140709
  7. LYOGEN [Suspect]
     Active Substance: FLUPHENAZINE
     Indication: SCHIZOAFFECTIVE DISORDER
     Dosage: DAILY DOSE: 3 MG MILLIGRAM(S) EVERY DAY
     Route: 065
     Dates: start: 20140708
  8. AKINETON [Concomitant]
     Active Substance: BIPERIDEN HYDROCHLORIDE
     Indication: PRODUCT USED FOR UNKNOWN INDICATION
     Dosage: DAILY DOSE: 4 MG MILLIGRAM(S)
     Route: 065
     Dates: start: 20140711, end: 20140714
  9. ABILIFY [Suspect]
     Active Substance: ARIPIPRAZOLE
     Dosage: UNK UNK, QD
     Route: 065
     Dates: start: 20140629
  10. LYOGEN [Suspect]
     Active Substance: FLUPHENAZINE
     Dosage: 6 MG, QD; DAILY DOSE: 6 MG MILLIGRAM(S)
     Route: 065
     Dates: start: 20140709, end: 20140727
  11. SERTRALIN STADA [Suspect]
     Active Substance: SERTRALINE HYDROCHLORIDE
     Indication: SCHIZOAFFECTIVE DISORDER
     Dosage: 25 MG, QD;(DAILY DOSE: 25 MG MILLIGRAM(S))
     Route: 065
     Dates: start: 20140710, end: 20140723
  12. ABILIFY [Suspect]
     Active Substance: ARIPIPRAZOLE
     Dosage: DAILY DOSE: 10 MG MILLIGRAM(S)
     Route: 065
     Dates: start: 20140620
  13. SOLIAN [Suspect]
     Active Substance: AMISULPRIDE
     Dosage: 600 MG, QD; DAILY DOSE: 600 MG MILLIGRAM(S)
     Route: 048
     Dates: start: 20140627, end: 20140707
  14. LYOGEN [Suspect]
     Active Substance: FLUPHENAZINE
     Dosage: 9 MG, QD; DAILY DOSE: 9 MG MILLIGRAM(S)
     Route: 065
     Dates: start: 20140728
  15. AKINETON [Concomitant]
     Active Substance: BIPERIDEN HYDROCHLORIDE
     Dosage: 6MG, UNK
     Route: 065
     Dates: start: 20170715
  16. ABILIFY [Suspect]
     Active Substance: ARIPIPRAZOLE
     Dosage: 15 MG, QD; DAILY DOSE: 15 MG MILLIGRAM(S)
     Route: 065
     Dates: start: 20140621, end: 20140622

REACTIONS (6)
  - Blood prolactin increased [Recovering/Resolving]
  - Musculoskeletal stiffness [Recovered/Resolved]
  - Underdose [Unknown]
  - Flatulence [Recovered/Resolved]
  - Accommodation disorder [Recovered/Resolved]
  - Constipation [Recovered/Resolved]

NARRATIVE: CASE EVENT DATE: 20140612
